FAERS Safety Report 17370311 (Version 1)
Quarter: 2020Q1

REPORT INFORMATION
  Report Type: Spontaneous
  Country: LT (occurrence: LT)
  Receive Date: 20200205
  Receipt Date: 20200205
  Transmission Date: 20200409
  Serious: Yes (Other)
  Sender: FDA-Public Use
  Company Number: LT-TEVA-2020-LT-1181479

PATIENT
  Age: 78 Year
  Sex: Female

DRUGS (5)
  1. CLONAZEPAM. [Concomitant]
     Active Substance: CLONAZEPAM
     Dosage: 2 MG
     Route: 048
  2. ASPIRIN 100MG TABLET [Concomitant]
     Dosage: 100 MG
     Route: 048
  3. ATORVASTATIN TEVA [Suspect]
     Active Substance: ATORVASTATIN
     Dosage: 40 MG
     Route: 048
     Dates: start: 20180727
  4. LEVOTHYROXINE. [Concomitant]
     Active Substance: LEVOTHYROXINE
     Dosage: 50 MCG
  5. PERINDOPRIL ARGININE [Concomitant]
     Active Substance: PERINDOPRIL ARGININE
     Dosage: 5 MG

REACTIONS (5)
  - Muscular weakness [Not Recovered/Not Resolved]
  - Liver injury [Not Recovered/Not Resolved]
  - Blood creatine phosphokinase increased [Not Recovered/Not Resolved]
  - Hepatic enzyme abnormal [Not Recovered/Not Resolved]
  - Rhabdomyolysis [Not Recovered/Not Resolved]

NARRATIVE: CASE EVENT DATE: 20191215
